FAERS Safety Report 5397810-3 (Version None)
Quarter: 2007Q3

REPORT INFORMATION
  Report Type: 
  Country: None (occurrence: None)
  Receive Date: 20070724
  Receipt Date: 20070724
  Transmission Date: 20080115
  Serious: Yes (Life-Threatening, Hospitalization)
  Sender: FDA-Public Use
  Company Number: None

PATIENT
  Age: 65 Year
  Sex: Female
  Weight: 90.7194 kg

DRUGS (1)
  1. LEVAQUIN [Suspect]
     Indication: CYSTITIS
     Dosage: 1 TABLET
     Dates: start: 20070602, end: 20070602

REACTIONS (9)
  - ARTHRALGIA [None]
  - COUGH [None]
  - DIARRHOEA [None]
  - DYSPNOEA [None]
  - ERYTHEMA [None]
  - PRURITUS [None]
  - STOMACH DISCOMFORT [None]
  - SWELLING FACE [None]
  - VOMITING [None]
